FAERS Safety Report 4643996-5 (Version None)
Quarter: 2005Q2

REPORT INFORMATION
  Report Type: 
  Country: None (occurrence: None)
  Receive Date: 20050331
  Receipt Date: 20041214
  Transmission Date: 20051028
  Serious: Yes (Hospitalization)
  Sender: FDA-Public Use
  Company Number: 04P-163-0283215-00

PATIENT
  Age: 65 Year
  Sex: Female
  Weight: 70.7611 kg

DRUGS (7)
  1. HUMIRA [Suspect]
     Indication: RHEUMATOID ARTHRITIS
     Dosage: 40 MG, 1 IN 2 WK, SUBCUTANEOUS
     Route: 058
     Dates: start: 20030701
  2. POTASSIUM CHLORIDE [Concomitant]
  3. METOPROLOL TARTRATE [Concomitant]
  4. LOSARTAN POTASSIUM [Concomitant]
  5. PREDNISONE [Concomitant]
  6. FUROSEMIDE [Concomitant]
  7. ASPIRIN [Concomitant]

REACTIONS (4)
  - DEHYDRATION [None]
  - HEART RATE IRREGULAR [None]
  - SEPSIS [None]
  - VOMITING [None]
